FAERS Safety Report 9056190 (Version 3)
Quarter: 2013Q2

REPORT INFORMATION
  Report Type: Spontaneous
  Country: HU (occurrence: HU)
  Receive Date: 20130205
  Receipt Date: 20130513
  Transmission Date: 20140414
  Serious: Yes (Death)
  Sender: FDA-Public Use
  Company Number: HU-GENZYME-CERZ-1002800

PATIENT
  Age: 63 Year
  Sex: Female

DRUGS (2)
  1. CEREZYME [Suspect]
     Indication: GAUCHER^S DISEASE
     Dosage: 40 U/KG, TWICE IN TWO WEEKS
     Route: 042
     Dates: start: 20121221, end: 20130107
  2. TRANSFUSION [Concomitant]
     Indication: PRODUCT USED FOR UNKNOWN INDICATION
     Dosage: UNK
     Route: 065

REACTIONS (3)
  - Sepsis [Fatal]
  - Septic shock [Fatal]
  - Aspergillus infection [Fatal]
